FAERS Safety Report 5596470-6 (Version None)
Quarter: 2008Q1

REPORT INFORMATION
  Report Type: 
  Country: None (occurrence: None)
  Receive Date: 20080118
  Receipt Date: 20080109
  Transmission Date: 20080703
  Serious: Yes (Death)
  Sender: FDA-Public Use
  Company Number: JP-PFIZER INC-2007108453

PATIENT
  Age: 80 Year
  Sex: Female

DRUGS (5)
  1. GABAPEN [Suspect]
     Indication: FACIAL PALSY
     Dosage: DAILY DOSE:1200MG
     Route: 048
  2. GABAPEN [Suspect]
     Indication: TRIGEMINAL NEURALGIA
  3. BREDININ [Concomitant]
  4. GASTER [Concomitant]
  5. YODEL [Concomitant]

REACTIONS (4)
  - ALTERED STATE OF CONSCIOUSNESS [None]
  - ENCEPHALITIS [None]
  - PYREXIA [None]
  - SOMNOLENCE [None]
